FAERS Safety Report 9908898 (Version 2)
Quarter: 2014Q1

REPORT INFORMATION
  Report Type: Spontaneous
  Country: DE (occurrence: DE)
  Receive Date: 20140219
  Receipt Date: 20140228
  Transmission Date: 20141002
  Serious: Yes (Other)
  Sender: FDA-Public Use
  Company Number: DE-CELGENEUS-062-21660-14022025

PATIENT
  Age: 38 Year
  Sex: Female

DRUGS (1)
  1. ABRAXANE [Suspect]
     Indication: BREAST CANCER
     Dosage: 120 MILLIGRAM
     Route: 065
     Dates: start: 20121011, end: 20140102

REACTIONS (5)
  - Large intestinal stenosis [Recovered/Resolved]
  - Ovarian cyst [Recovered/Resolved]
  - Constipation [Recovered/Resolved]
  - Abdominal pain upper [Unknown]
  - Breast cancer [Not Recovered/Not Resolved]
